FAERS Safety Report 18054493 (Version 1)
Quarter: 2020Q3

REPORT INFORMATION
  Report Type: Spontaneous
  Country: US (occurrence: US)
  Receive Date: 20200722
  Receipt Date: 20200722
  Transmission Date: 20201103
  Serious: Yes (Other)
  Sender: FDA-Public Use
  Company Number: US-SA-2020SA188037

PATIENT

DRUGS (2)
  1. LEMTRADA [Suspect]
     Active Substance: ALEMTUZUMAB
     Dosage: UNK
     Dates: start: 201806
  2. LEMTRADA [Suspect]
     Active Substance: ALEMTUZUMAB
     Indication: RELAPSING MULTIPLE SCLEROSIS
     Dosage: UNK
     Dates: start: 201906

REACTIONS (6)
  - Hyperthyroidism [Unknown]
  - Anxiety [Unknown]
  - Hyperhidrosis [Unknown]
  - Anti-thyroid antibody positive [Unknown]
  - Weight decreased [Unknown]
  - Hunger [Unknown]

NARRATIVE: CASE EVENT DATE: 202001
